FAERS Safety Report 17190269 (Version 1)
Quarter: 2019Q4

REPORT INFORMATION
  Report Type: Spontaneous
  Country: GB (occurrence: GB)
  Receive Date: 20191223
  Receipt Date: 20191223
  Transmission Date: 20200122
  Serious: Yes (Disabling, Other)
  Sender: FDA-Public Use
  Company Number: GB-AXELLIA-002886

PATIENT
  Age: 84 Year
  Sex: Female
  Weight: 71 kg

DRUGS (29)
  1. CARBOMER [Concomitant]
     Active Substance: CARBOMER
     Dosage: 980
  2. BUMETANIDE. [Concomitant]
     Active Substance: BUMETANIDE
  3. MEROPENEM. [Concomitant]
     Active Substance: MEROPENEM
  4. TAZOCIN [Concomitant]
     Active Substance: PIPERACILLIN SODIUM\TAZOBACTAM SODIUM
  5. BEZAFIBRATE [Concomitant]
     Active Substance: BEZAFIBRATE
  6. PREDNISOLONE. [Concomitant]
     Active Substance: PREDNISOLONE
  7. VANCOMYCIN [Suspect]
     Active Substance: VANCOMYCIN
     Indication: SEPSIS
     Route: 042
     Dates: start: 20191112, end: 20191126
  8. DERMOL [Concomitant]
     Active Substance: BENZALKONIUM CHLORIDE\CHLORHEXIDINE HYDROCHLORIDE\ISOPROPYL MYRISTATE\PARAFFIN
  9. CLOPIDOGREL [Concomitant]
     Active Substance: CLOPIDOGREL BISULFATE
  10. DANAPAROID [Concomitant]
     Active Substance: DANAPAROID
  11. METOCLOPRAMIDE. [Concomitant]
     Active Substance: METOCLOPRAMIDE
  12. FUCIBET [Concomitant]
  13. DIAZEPAM. [Concomitant]
     Active Substance: DIAZEPAM
  14. HEPARIN [Concomitant]
     Active Substance: HEPARIN SODIUM
  15. FLUCLOXACILLIN [Concomitant]
     Active Substance: FLUCLOXACILLIN
  16. ERYTHROMYCIN. [Concomitant]
     Active Substance: ERYTHROMYCIN
  17. NYSTATIN/NYSTATIN/LIPOSOME [Concomitant]
     Active Substance: NYSTATIN
  18. AMOXICILLIN/CLAVULANATE POTASSIUM [Concomitant]
     Active Substance: AMOXICILLIN\CLAVULANATE POTASSIUM
  19. BISOPROLOL [Concomitant]
     Active Substance: BISOPROLOL
  20. OPTREX [Concomitant]
  21. DIGOXIN. [Concomitant]
     Active Substance: DIGOXIN
  22. QUININE [Concomitant]
     Active Substance: QUININE
  23. DALTEPARIN [Concomitant]
     Active Substance: DALTEPARIN
  24. DOXYCYCLINE. [Concomitant]
     Active Substance: DOXYCYCLINE
  25. AMLODIPINE [Concomitant]
     Active Substance: AMLODIPINE BESYLATE
  26. LOPERAMIDE HYDROCHLORIDE. [Concomitant]
     Active Substance: LOPERAMIDE HYDROCHLORIDE
  27. LANSOPRAZOLE. [Concomitant]
     Active Substance: LANSOPRAZOLE
  28. CLOTRIMAZOLE. [Concomitant]
     Active Substance: CLOTRIMAZOLE
  29. PARACETAMOL [Concomitant]
     Active Substance: ACETAMINOPHEN

REACTIONS (2)
  - Conjunctivitis [Unknown]
  - Stevens-Johnson syndrome [Recovering/Resolving]

NARRATIVE: CASE EVENT DATE: 20191124
